FAERS Safety Report 5150896-3 (Version None)
Quarter: 2006Q4

REPORT INFORMATION
  Report Type: 
  Country: None (occurrence: None)
  Receive Date: 20061108
  Receipt Date: 20061026
  Transmission Date: 20070319
  Serious: Yes (Other)
  Sender: FDA-Public Use
  Company Number: 2006134147

PATIENT
  Age: 63 Year
  Sex: Female

DRUGS (1)
  1. CABERGOLINE [Suspect]
     Indication: PARKINSON'S DISEASE
     Dosage: 4 MG (1 D),ORAL
     Route: 048

REACTIONS (8)
  - AORTIC VALVE CALCIFICATION [None]
  - AORTIC VALVE INCOMPETENCE [None]
  - BLOOD PRESSURE INCREASED [None]
  - CARDIAC MURMUR [None]
  - CARDIAC VALVE DISEASE [None]
  - ELECTROCARDIOGRAM ST SEGMENT ABNORMAL [None]
  - MITRAL VALVE DISEASE [None]
  - TRICUSPID VALVE DISEASE [None]
